FAERS Safety Report 9664113 (Version 1)
Quarter: 2013Q4

REPORT INFORMATION
  Report Type: Spontaneous
  Country: FR (occurrence: FR)
  Receive Date: 20131101
  Receipt Date: 20131101
  Transmission Date: 20140711
  Serious: Yes (Other)
  Sender: FDA-Public Use
  Company Number: FR-TEVA-439514ISR

PATIENT
  Age: 65 Year
  Sex: Male

DRUGS (1)
  1. IRBESARTAN HYDROCHLOROTHIAZIDE TEVA 150 MG/12.5 MG [Suspect]
     Indication: HYPERTENSION
     Dosage: 1 DOSAGE FORMS DAILY;
     Route: 048
     Dates: start: 20130719, end: 20130730

REACTIONS (2)
  - Diplopia [Recovered/Resolved]
  - Ear pain [Recovered/Resolved]
